FAERS Safety Report 9451220 (Version 1)
Quarter: 2013Q3

REPORT INFORMATION
  Report Type: Spontaneous
  Country: MX (occurrence: MX)
  Receive Date: 20130809
  Receipt Date: 20130809
  Transmission Date: 20140515
  Serious: Yes (Death)
  Sender: FDA-Public Use
  Company Number: MX-TEVA-423599ISR

PATIENT
  Sex: 0

DRUGS (1)
  1. FILGRASTIM [Suspect]

REACTIONS (2)
  - Drug ineffective [Fatal]
  - Neutropenia [Fatal]
